FAERS Safety Report 7216824-1 (Version None)
Quarter: 2011Q1

REPORT INFORMATION
  Report Type: 
  Country: None (occurrence: None)
  Receive Date: 20110110
  Receipt Date: 20100219
  Transmission Date: 20110831
  Serious: No
  Sender: FDA-Public Use
  Company Number: 2010BI005952

PATIENT
  Age: 49 Year
  Sex: Female

DRUGS (1)
  1. TYSABRI [Suspect]
     Indication: MULTIPLE SCLEROSIS
     Route: 042
     Dates: start: 20091208

REACTIONS (7)
  - MUSCULOSKELETAL DISORDER [None]
  - HYPOAESTHESIA [None]
  - BALANCE DISORDER [None]
  - PAIN IN EXTREMITY [None]
  - GAIT DISTURBANCE [None]
  - FEELING ABNORMAL [None]
  - MUSCULAR WEAKNESS [None]
